FAERS Safety Report 19154463 (Version 1)
Quarter: 2021Q2

REPORT INFORMATION
  Report Type: Spontaneous
  Country: US (occurrence: US)
  Receive Date: 20210419
  Receipt Date: 20210419
  Transmission Date: 20210717
  Serious: Yes (Disabling, Other)
  Sender: FDA-Public Use
  Company Number: US-ALVOGEN-2021-ALVOGEN-116869

PATIENT
  Age: 4 Month
  Sex: Male

DRUGS (5)
  1. MELPHALAN. [Suspect]
     Active Substance: MELPHALAN
     Indication: CONGENITAL RETINOBLASTOMA
     Dosage: INTRA?ARTERIAL CHEMOTHERAPY
     Route: 013
  2. ETOPOSIDE. [Suspect]
     Active Substance: ETOPOSIDE
     Indication: CONGENITAL RETINOBLASTOMA
  3. VINCRISTINE SULFATE. [Suspect]
     Active Substance: VINCRISTINE SULFATE
     Indication: CONGENITAL RETINOBLASTOMA
  4. CARBOPLATIN. [Suspect]
     Active Substance: CARBOPLATIN
     Indication: CONGENITAL RETINOBLASTOMA
  5. TOPOTECAN [Suspect]
     Active Substance: TOPOTECAN HYDROCHLORIDE
     Indication: CONGENITAL RETINOBLASTOMA

REACTIONS (7)
  - Atrophy of globe [Recovered/Resolved with Sequelae]
  - Dystrophic calcification [Recovered/Resolved with Sequelae]
  - Retinopathy proliferative [Recovered/Resolved with Sequelae]
  - Macular fibrosis [Recovered/Resolved with Sequelae]
  - Toxicity to various agents [Unknown]
  - Retinal degeneration [Recovered/Resolved with Sequelae]
  - Eye excision [Recovered/Resolved with Sequelae]
